FAERS Safety Report 7638798-1 (Version None)
Quarter: 2011Q3

REPORT INFORMATION
  Report Type: 
  Country: None (occurrence: None)
  Receive Date: 20110721
  Receipt Date: 20110715
  Transmission Date: 20111222
  Serious: Yes (Other)
  Sender: FDA-Public Use
  Company Number: US-2011-10487

PATIENT
  Age: 50 Year
  Sex: Male

DRUGS (5)
  1. METHOTREXATE [Concomitant]
  2. FLUDARABINE PHOSPHATE [Suspect]
     Indication: STEM CELL TRANSPLANT
     Dosage: 30 MG/M2, DAILY DOSE, INTRAVENOUS
     Route: 042
  3. ANTI-THYMOCYTE GLOBULIN NOS [Concomitant]
  4. TACROLIMUS [Concomitant]
  5. BUSULFAN [Suspect]
     Indication: STEM CELL TRANSPLANT
     Dosage: 3.2 MG/M2, DAILY, INTRAVENOUS
     Route: 042

REACTIONS (9)
  - PNEUMONIA BACTERIAL [None]
  - GRAFT VERSUS HOST DISEASE [None]
  - SQUAMOUS CELL CARCINOMA [None]
  - CEREBRAL TOXOPLASMOSIS [None]
  - RESPIRATORY SYNCYTIAL VIRUS INFECTION [None]
  - DISEASE RECURRENCE [None]
  - HERPES VIRUS INFECTION [None]
  - EPSTEIN-BARR VIRUS INFECTION [None]
  - BRONCHOPULMONARY ASPERGILLOSIS [None]
